FAERS Safety Report 8894666 (Version 1)
Quarter: 2012Q4

REPORT INFORMATION
  Report Type: 
  Country: US (occurrence: US)
  Receive Date: 20121107
  Receipt Date: 20121107
  Transmission Date: 20130627
  Serious: No
  Sender: FDA-Public Use
  Company Number: US-AMGEN-USASP2011050405

PATIENT
  Age: 30 Year
  Sex: Male

DRUGS (2)
  1. ENBREL [Suspect]
     Indication: PSORIASIS
     Dosage: 50 mg, UNK
     Dates: start: 20090622, end: 200909
  2. CYCLOSPORINE [Concomitant]
     Dosage: 1 mg, qd
     Dates: start: 201012

REACTIONS (1)
  - Psoriasis [Not Recovered/Not Resolved]
